FAERS Safety Report 5486062-1 (Version None)
Quarter: 2007Q4

REPORT INFORMATION
  Report Type: 
  Country: None (occurrence: None)
  Receive Date: 20071015
  Receipt Date: 20071003
  Transmission Date: 20080405
  Serious: Yes (Other)
  Sender: FDA-Public Use
  Company Number: GB-PFIZER INC-2007084245

PATIENT
  Age: 36 Year
  Sex: Female
  Weight: 55 kg

DRUGS (1)
  1. CHAMPIX [Suspect]
     Indication: SMOKING CESSATION THERAPY
     Route: 048
     Dates: start: 20070911, end: 20070915

REACTIONS (2)
  - INTENTIONAL SELF-INJURY [None]
  - VOMITING [None]
